FAERS Safety Report 4785525-1 (Version None)
Quarter: 2005Q3

REPORT INFORMATION
  Report Type: 
  Country: None (occurrence: None)
  Receive Date: 20050929
  Receipt Date: 20050920
  Transmission Date: 20060218
  Serious: Yes (Hospitalization, Other)
  Sender: FDA-Public Use
  Company Number: 2005-09-1281

PATIENT
  Sex: Female

DRUGS (1)
  1. PEG-INTRON (PEGINTERFERON ALFA-2B) REDIPEN [Suspect]
     Dosage: SUBCUTANEOUS
     Route: 058
     Dates: end: 20050901

REACTIONS (3)
  - PHARMACEUTICAL PRODUCT COMPLAINT [None]
  - URINARY BLADDER HAEMORRHAGE [None]
  - URINARY RETENTION [None]
